FAERS Safety Report 8150973-9 (Version None)
Quarter: 2012Q1

REPORT INFORMATION
  Report Type: 
  Country: None (occurrence: None)
  Receive Date: 20120220
  Receipt Date: 20120210
  Transmission Date: 20120608
  Serious: Yes (Death)
  Sender: FDA-Public Use
  Company Number: PHEH2011US06613

PATIENT
  Sex: Female

DRUGS (23)
  1. CYMBALTA [Concomitant]
     Dosage: 120 MG, QD
     Route: 048
     Dates: start: 20101117
  2. FUROSEMIDE [Concomitant]
     Dosage: 1 DF, BID
     Route: 048
     Dates: start: 20110728
  3. ZANAFLEX [Concomitant]
     Dosage: 1 DF, PRN
     Dates: start: 20110728
  4. COUMADIN [Concomitant]
     Indication: THROMBOSIS
     Dosage: 68 MG, QW
     Route: 048
     Dates: start: 20110922
  5. AMBIEN [Concomitant]
     Dosage: 10 MG, QD
     Route: 048
     Dates: start: 20101117
  6. ZONISAMIDE [Concomitant]
     Dosage: 1 DF, QD
     Route: 048
     Dates: start: 20110310
  7. PHENOTHIAZINE [Concomitant]
     Dosage: 25 MG, PRN
     Dates: start: 20101117
  8. CHANTIX [Concomitant]
     Dosage: 1 DF, BID
     Route: 048
     Dates: start: 20110728
  9. KLONOPIN [Concomitant]
     Dosage: 1 DF, BID
     Route: 048
     Dates: start: 20110728
  10. MACROBID [Concomitant]
     Dosage: 1 DF, QD
     Route: 048
     Dates: start: 20101117
  11. ABILIFY [Concomitant]
     Dosage: 1 DF, QD
     Route: 048
     Dates: start: 20110825
  12. GILENYA [Suspect]
     Indication: RELAPSING-REMITTING MULTIPLE SCLEROSIS
     Dosage: 0.5 MG, QD
     Route: 048
     Dates: start: 20110608
  13. SPIRONOLACTONE [Concomitant]
     Dosage: 2 DF, BID
     Route: 048
     Dates: start: 20101117
  14. NEURONTIN [Concomitant]
     Dosage: 2 DF, TID
     Route: 048
     Dates: start: 20110407
  15. PROMETHAZINE [Concomitant]
     Dosage: 25 MG, TID PRN
     Route: 048
     Dates: start: 20110728
  16. DITROPAN XL [Concomitant]
     Dosage: 1 DF, QD
     Route: 048
     Dates: start: 20110922
  17. OXYCODONE AND ACETAMINOPHEN [Concomitant]
     Dosage: 1 DF OXYCODONE 5MG+ ACETAMINOPHEN 500MG, PRN
     Route: 048
     Dates: start: 20110817
  18. XANAX [Concomitant]
     Dosage: 0.5 MG, BID
     Dates: start: 20101117
  19. BACLOFEN [Concomitant]
     Dosage: 0.5 DF, QD
     Route: 048
     Dates: start: 20110817
  20. TORADOL [Concomitant]
     Dosage: 60/2 ML, QW
  21. NUCYNTA [Concomitant]
     Dosage: 1 DF, 5QD, AS NEEDED
     Route: 048
     Dates: start: 20110728
  22. DILAUDID [Concomitant]
     Dosage: 5 DF, QD
     Route: 048
     Dates: start: 20110728
  23. PROCTOFOAM HC [Concomitant]
     Dosage: UNK
     Dates: start: 20110804

REACTIONS (4)
  - DEATH [None]
  - MUSCLE SPASTICITY [None]
  - HYPOAESTHESIA [None]
  - MULTIPLE SCLEROSIS [None]
